FAERS Safety Report 5738247-4 (Version None)
Quarter: 2008Q2

REPORT INFORMATION
  Report Type: 
  Country: None (occurrence: None)
  Receive Date: 20080514
  Receipt Date: 20080502
  Transmission Date: 20081010
  Serious: Yes (Hospitalization, Other)
  Sender: FDA-Public Use
  Company Number: GB-PFIZER INC-2008028562

PATIENT
  Age: 72 Year
  Sex: Male

DRUGS (4)
  1. PHENYTOIN [Suspect]
     Indication: EPILEPSY
  2. OMEPRAZOLE [Interacting]
  3. PERINDOPRIL ERBUMINE [Concomitant]
  4. INDAPAMIDE [Concomitant]

REACTIONS (12)
  - ATAXIA [None]
  - BALANCE DISORDER [None]
  - CEREBELLAR SYNDROME [None]
  - CEREBROVASCULAR ACCIDENT [None]
  - COORDINATION ABNORMAL [None]
  - DRUG INTERACTION [None]
  - FALL [None]
  - INHIBITORY DRUG INTERACTION [None]
  - NYSTAGMUS [None]
  - PAST-POINTING [None]
  - THERAPEUTIC AGENT TOXICITY [None]
  - TREMOR [None]
